FAERS Safety Report 24685234 (Version 1)
Quarter: 2024Q4

REPORT INFORMATION
  Report Type: Spontaneous
  Country: US (occurrence: US)
  Receive Date: 20241202
  Receipt Date: 20241202
  Transmission Date: 20250114
  Serious: No
  Sender: ROCHE
  Company Number: US-ROCHE-10000141830

PATIENT
  Age: 41 Year
  Sex: Female

DRUGS (3)
  1. ACTEMRA ACTPEN [Suspect]
     Active Substance: TOCILIZUMAB
     Indication: Rheumatoid arthritis
     Route: 058
     Dates: start: 20241120
  2. PREDNISONE [Concomitant]
     Active Substance: PREDNISONE
  3. KEVZARA [Concomitant]
     Active Substance: SARILUMAB

REACTIONS (2)
  - Road traffic accident [Unknown]
  - Contusion [Recovered/Resolved]

NARRATIVE: CASE EVENT DATE: 20241122
